FAERS Safety Report 8896879 (Version 2)
Quarter: 2012Q4

REPORT INFORMATION
  Report Type: 
  Country: US (occurrence: US)
  Receive Date: 20121108
  Receipt Date: 20121214
  Transmission Date: 20130627
  Serious: No
  Sender: FDA-Public Use
  Company Number: US-ASTRAZENECA-2012SE81699

PATIENT
  Age: 85 Year
  Sex: Male
  Weight: 78 kg

DRUGS (3)
  1. RHINOCORT AQUA [Suspect]
     Indication: DIZZINESS
     Dosage: 1 SPRAY EACH DAILY
     Route: 045
  2. AMLODIPINE [Concomitant]
     Indication: HYPERTENSION
  3. ZANTAC [Concomitant]
     Indication: GASTROOESOPHAGEAL REFLUX DISEASE

REACTIONS (4)
  - Nasal congestion [Unknown]
  - Hypertension [Unknown]
  - Drug dose omission [Unknown]
  - Off label use [Unknown]
